FAERS Safety Report 5128003-2 (Version None)
Quarter: 2006Q4

REPORT INFORMATION
  Report Type: 
  Country: None (occurrence: None)
  Receive Date: 20061010
  Receipt Date: 20060929
  Transmission Date: 20070319
  Serious: Yes (Hospitalization)
  Sender: FDA-Public Use
  Company Number: 2006-02520

PATIENT

DRUGS (2)
  1. VELCADE [Suspect]
     Indication: MULTIPLE MYELOMA
     Dosage: 2.40 MG/M2, UNK, UNKNOWN
     Dates: start: 20060808, end: 20060814
  2. DEXAMETHASONE TAB [Suspect]
     Indication: MULTIPLE MYELOMA
     Dosage: 40.00 MG, UNK, UNKNOWN
     Dates: start: 20060801, end: 20060801

REACTIONS (2)
  - DIARRHOEA [None]
  - WEIGHT DECREASED [None]
